FAERS Safety Report 8966542 (Version 2)
Quarter: 2013Q1

REPORT INFORMATION
  Report Type: Spontaneous
  Country: FR (occurrence: FR)
  Receive Date: 20121214
  Receipt Date: 20130129
  Transmission Date: 20140127
  Serious: Yes (Other)
  Sender: FDA-Public Use
  Company Number: FR-GENZYME-FABR-1002898

PATIENT
  Age: 47 Year
  Sex: Male

DRUGS (5)
  1. FABRAZYME [Suspect]
     Indication: FABRY^S DISEASE
     Dosage: 70 MG/DAY, Q2W
     Route: 042
     Dates: end: 20121126
  2. ATARAX [Concomitant]
     Indication: PREMEDICATION
     Dosage: 25 MG, Q2W
     Route: 048
  3. SOLU-MEDROL [Concomitant]
     Indication: PREMEDICATION
     Dosage: 40 MG, Q2W
     Route: 042
  4. POLARAMINE [Concomitant]
     Indication: PREMEDICATION
     Dosage: UNK
     Route: 042
  5. PLAVIX [Concomitant]
     Indication: PRODUCT USED FOR UNKNOWN INDICATION
     Dosage: 1 DF, QD
     Route: 065

REACTIONS (2)
  - Malaise [Recovered/Resolved]
  - Bronchospasm [Recovered/Resolved]
